FAERS Safety Report 6502611-6 (Version None)
Quarter: 2009Q4

REPORT INFORMATION
  Report Type: 
  Country: None (occurrence: None)
  Receive Date: 20091217
  Receipt Date: 20091211
  Transmission Date: 20100525
  Serious: Yes (Hospitalization)
  Sender: FDA-Public Use
  Company Number: JP-EISAI INC.-E2020-05654-SPO-JP

PATIENT
  Age: 90 Year
  Sex: Male

DRUGS (8)
  1. ARICEPT [Suspect]
     Route: 048
     Dates: start: 20080128, end: 20091126
  2. ARICEPT [Suspect]
     Route: 048
     Dates: start: 20091127, end: 20091127
  3. SELBEX [Suspect]
     Indication: DRUG USE FOR UNKNOWN INDICATION
     Dosage: UNKNOWN
     Route: 048
     Dates: end: 20091126
  4. SELBEX [Suspect]
     Dosage: 10 TABLETS
     Route: 048
     Dates: start: 20091127, end: 20091127
  5. YODEL-S [Suspect]
     Indication: DRUG USE FOR UNKNOWN INDICATION
     Dosage: UNKNOWN
     Route: 048
     Dates: end: 20091126
  6. YODEL-S [Suspect]
     Dosage: 10 TABLETS
     Route: 048
     Dates: start: 20091127, end: 20091127
  7. URSO 250 [Concomitant]
     Route: 048
  8. FUROSEMIDE [Concomitant]
     Route: 048

REACTIONS (1)
  - OVERDOSE [None]
